FAERS Safety Report 8738361 (Version 2)
Quarter: 2014Q1

REPORT INFORMATION
  Report Type: Spontaneous
  Country: US (occurrence: US)
  Receive Date: 20120823
  Receipt Date: 20140206
  Transmission Date: 20141002
  Serious: No
  Sender: FDA-Public Use
  Company Number: US-MERCK-1208USA005200

PATIENT
  Sex: Male
  Weight: 65.76 kg

DRUGS (2)
  1. PROPECIA [Suspect]
     Indication: ALOPECIA
     Dosage: 1 MG, QD
     Route: 048
     Dates: start: 20010706, end: 20110531
  2. CLARITIN [Concomitant]
     Indication: HYPERSENSITIVITY
     Dosage: 10 MG, QD

REACTIONS (10)
  - Cognitive disorder [Not Recovered/Not Resolved]
  - Sperm concentration decreased [Unknown]
  - Acute sinusitis [Unknown]
  - Sinusitis aspergillus [Unknown]
  - Oroantral fistula [Unknown]
  - Sinus antrostomy [Unknown]
  - Oral herpes [Unknown]
  - Sexual dysfunction [Not Recovered/Not Resolved]
  - Erectile dysfunction [Unknown]
  - Libido decreased [Unknown]
